FAERS Safety Report 16527053 (Version 2)
Quarter: 2019Q3

REPORT INFORMATION
  Report Type: Spontaneous
  Country: US (occurrence: US)
  Receive Date: 20190703
  Receipt Date: 20190705
  Transmission Date: 20191004
  Serious: No
  Sender: FDA-Public Use
  Company Number: US-PFIZER INC-2019271136

PATIENT
  Age: 72 Year
  Sex: Female
  Weight: 49 kg

DRUGS (3)
  1. MELOXICAM. [Concomitant]
     Active Substance: MELOXICAM
     Dosage: UNK
  2. LYRICA [Suspect]
     Active Substance: PREGABALIN
     Indication: OSTEOARTHRITIS
     Dosage: 50 MG, 2X/DAY
     Dates: start: 201904, end: 2019
  3. LYRICA [Suspect]
     Active Substance: PREGABALIN
     Indication: FIBROMYALGIA
     Dosage: 75 MG, 2X/DAY
     Route: 048
     Dates: start: 2019, end: 201905

REACTIONS (6)
  - Intentional product misuse [Unknown]
  - Peripheral swelling [Recovering/Resolving]
  - Drug ineffective [Unknown]
  - Decreased appetite [Unknown]
  - Insomnia [Recovered/Resolved]
  - Withdrawal syndrome [Unknown]

NARRATIVE: CASE EVENT DATE: 2019
